FAERS Safety Report 7909323-2 (Version None)
Quarter: 2011Q4

REPORT INFORMATION
  Report Type: 
  Country: None (occurrence: None)
  Receive Date: 20111111
  Receipt Date: 20111104
  Transmission Date: 20120403
  Serious: Yes (Hospitalization)
  Sender: FDA-Public Use
  Company Number: US-AMGEN-USASP2011048845

PATIENT
  Age: 32 Year
  Sex: Female

DRUGS (2)
  1. ENBREL [Suspect]
     Indication: PSORIATIC ARTHROPATHY
     Dosage: 50 MG, QWK
     Dates: start: 20050101, end: 20060101
  2. ENBREL [Suspect]
     Dosage: UNK
     Dates: start: 20110601

REACTIONS (7)
  - INDUCED LABOUR [None]
  - JOINT STIFFNESS [None]
  - INJECTION SITE PAIN [None]
  - INJECTION SITE SWELLING [None]
  - AMNIOTIC FLUID VOLUME DECREASED [None]
  - ARTHRALGIA [None]
  - INJECTION SITE HAEMATOMA [None]
